FAERS Safety Report 4331890-9 (Version None)
Quarter: 2004Q2

REPORT INFORMATION
  Report Type: 
  Country: None (occurrence: None)
  Receive Date: 20040405
  Receipt Date: 20040223
  Transmission Date: 20050107
  Serious: No
  Sender: FDA-Public Use
  Company Number: US-GLAXOSMITHKLINE-A0499430A

PATIENT
  Age: 7 Year
  Sex: Male

DRUGS (5)
  1. FLOVENT [Suspect]
     Indication: ILL-DEFINED DISORDER
     Dosage: 88MCG TWICE PER DAY
     Route: 055
     Dates: start: 20031101, end: 20040222
  2. PREDNISONE [Concomitant]
  3. SINGULAIR [Concomitant]
  4. XOPENEX [Concomitant]
     Route: 065
  5. ANTIBIOTICS [Concomitant]

REACTIONS (1)
  - THROAT IRRITATION [None]
